FAERS Safety Report 24054522 (Version 2)
Quarter: 2024Q3

REPORT INFORMATION
  Report Type: Spontaneous
  Country: US (occurrence: US)
  Receive Date: 20240705
  Receipt Date: 20240730
  Transmission Date: 20241016
  Serious: Yes (Other)
  Sender: NOVARTIS
  Company Number: US-002147023-NVSC2024US139045

PATIENT
  Age: 37 Year
  Sex: Male
  Weight: 83.9 kg

DRUGS (2)
  1. KESIMPTA [Suspect]
     Active Substance: OFATUMUMAB
     Indication: Multiple sclerosis
     Dosage: 20 MG
     Route: 065
  2. KESIMPTA [Suspect]
     Active Substance: OFATUMUMAB
     Dosage: UNK (Q28D)
     Route: 058
     Dates: start: 20240513

REACTIONS (8)
  - Anaphylactic reaction [Recovered/Resolved]
  - Swelling face [Recovered/Resolved]
  - Bronchospasm [Recovered/Resolved]
  - Urticaria [Recovering/Resolving]
  - Lip swelling [Unknown]
  - Blister [Unknown]
  - Rash [Unknown]
  - Throat irritation [Unknown]

NARRATIVE: CASE EVENT DATE: 20240514
